FAERS Safety Report 25663518 (Version 2)
Quarter: 2025Q3

REPORT INFORMATION
  Report Type: Report from Study
  Country: US (occurrence: US)
  Receive Date: 20250811
  Receipt Date: 20250828
  Transmission Date: 20251021
  Serious: Yes (Hospitalization)
  Sender: JAZZ
  Company Number: US-JAZZ PHARMACEUTICALS-2025-US-019295

PATIENT
  Sex: Female

DRUGS (1)
  1. EPIDIOLEX [Suspect]
     Active Substance: CANNABIDIOL
     Indication: Epilepsy
     Dosage: 2.1 MILLILITER, BID
     Dates: start: 202507

REACTIONS (4)
  - Seizure [Unknown]
  - Depression [Unknown]
  - Diarrhoea [Unknown]
  - Off label use [Unknown]
